FAERS Safety Report 20868975 (Version 1)
Quarter: 2022Q2

REPORT INFORMATION
  Report Type: Spontaneous
  Country: US (occurrence: US)
  Receive Date: 20220524
  Receipt Date: 20220524
  Transmission Date: 20220721
  Serious: Yes (Other)
  Sender: FDA-Public Use
  Company Number: US-BRISTOL-MYERS SQUIBB COMPANY-2022-040624

PATIENT
  Age: 88 Year
  Sex: Female

DRUGS (1)
  1. REVLIMID [Suspect]
     Active Substance: LENALIDOMIDE
     Indication: Immune thrombocytopenia
     Dosage: QD X 21 DAYS THEN 7 DAYS OFF
     Route: 048
     Dates: start: 20201102

REACTIONS (1)
  - Renal impairment [Not Recovered/Not Resolved]
